FAERS Safety Report 7954846-3 (Version None)
Quarter: 2011Q4

REPORT INFORMATION
  Report Type: 
  Country: None (occurrence: None)
  Receive Date: 20111202
  Receipt Date: 20111128
  Transmission Date: 20120403
  Serious: Yes (Hospitalization, Other)
  Sender: FDA-Public Use
  Company Number: US-ACTELION-A-US2011-52377

PATIENT

DRUGS (1)
  1. TRACLEER [Suspect]
     Indication: PULMONARY ARTERIAL HYPERTENSION
     Dosage: UNK
     Route: 048
     Dates: start: 20100323

REACTIONS (5)
  - FLUID RETENTION [None]
  - NEOPLASM MALIGNANT [None]
  - CARDIAC FAILURE CONGESTIVE [None]
  - ULCER HAEMORRHAGE [None]
  - GASTRIC CANCER [None]
